FAERS Safety Report 9947291 (Version 1)
Quarter: 2014Q1

REPORT INFORMATION
  Report Type: Report from Study
  Country: US (occurrence: US)
  Receive Date: 20140303
  Receipt Date: 20140303
  Transmission Date: 20141002
  Serious: No
  Sender: FDA-Public Use
  Company Number: US-ABBVIE-13P-163-1059669-00

PATIENT
  Age: 48 Year
  Sex: Male

DRUGS (5)
  1. HUMIRA [Suspect]
     Indication: PSORIASIS
     Dates: start: 20130212, end: 20130212
  2. HUMIRA [Suspect]
     Dates: start: 20130219, end: 20130219
  3. HUMIRA [Suspect]
     Dates: start: 20130305
  4. LIPITOR [Concomitant]
     Indication: BLOOD CHOLESTEROL INCREASED
     Dosage: 1 DAILY
     Route: 048
  5. PROPOFOL [Concomitant]
     Indication: AORTIC ANEURYSM
     Dosage: 1/4 PILL DAILY

REACTIONS (1)
  - Psoriasis [Not Recovered/Not Resolved]
